FAERS Safety Report 7625492-6 (Version None)
Quarter: 2011Q3

REPORT INFORMATION
  Report Type: 
  Country: None (occurrence: None)
  Receive Date: 20110705
  Receipt Date: 20110628
  Transmission Date: 20111222
  Serious: Yes (Hospitalization)
  Sender: FDA-Public Use
  Company Number: PTU-11-01

PATIENT
  Sex: Female

DRUGS (1)
  1. PROPYLTHIOURACIL [Suspect]
     Indication: HYPERTHYROIDISM
     Dosage: 50MG/DAY

REACTIONS (4)
  - THYROID FUNCTION TEST ABNORMAL [None]
  - MATERNAL DRUGS AFFECTING FOETUS [None]
  - APLASIA CUTIS CONGENITA [None]
  - BLOOD THYROID STIMULATING HORMONE DECREASED [None]
